APPROVED DRUG PRODUCT: FLAC
Active Ingredient: FLUOCINOLONE ACETONIDE
Strength: 0.01%
Dosage Form/Route: OIL/DROPS;OTIC
Application: A210736 | Product #001 | TE Code: AT
Applicant: ANDA REPOSITORY LLC
Approved: Apr 11, 2018 | RLD: No | RS: No | Type: RX